FAERS Safety Report 22238888 (Version 1)
Quarter: 2023Q2

REPORT INFORMATION
  Report Type: Spontaneous
  Country: JP (occurrence: JP)
  Receive Date: 20230421
  Receipt Date: 20230421
  Transmission Date: 20230721
  Serious: Yes (Hospitalization, Other)
  Sender: FDA-Public Use
  Company Number: JP-UNITED THERAPEUTICS-UNT-2018-005358

PATIENT
  Age: 27 Year
  Sex: Female
  Weight: 48 kg

DRUGS (27)
  1. REMODULIN [Suspect]
     Active Substance: TREPROSTINIL
     Indication: Pulmonary arterial hypertension
     Dosage: UNK, CONTINUING
     Route: 041
     Dates: start: 20170116, end: 20180512
  2. REMODULIN [Suspect]
     Active Substance: TREPROSTINIL
     Dosage: 0.0085 ?G/KG, CONTINUING
     Route: 041
     Dates: start: 2017
  3. REMODULIN [Suspect]
     Active Substance: TREPROSTINIL
     Dosage: 0.113 ?G/KG, CONTINUING
     Route: 041
     Dates: start: 2017
  4. REMODULIN [Suspect]
     Active Substance: TREPROSTINIL
     Dosage: 0.186 ?G/KG, CONTINUING
     Route: 041
     Dates: start: 2017
  5. REMODULIN [Suspect]
     Active Substance: TREPROSTINIL
     Dosage: 0.192384 ?G/KG, CONTINUING
     Route: 041
     Dates: start: 2017
  6. REMODULIN [Suspect]
     Active Substance: TREPROSTINIL
     Dosage: 0.186372 ?G/KG, CONTINUING
     Route: 041
     Dates: start: 2017
  7. REMODULIN [Suspect]
     Active Substance: TREPROSTINIL
     Dosage: 0.204 ?G/KG, CONTINUING
     Route: 041
  8. REMODULIN [Suspect]
     Active Substance: TREPROSTINIL
     Dosage: 0.198 ?G/KG, CONTINUING
     Route: 041
     Dates: start: 2018
  9. REMODULIN [Suspect]
     Active Substance: TREPROSTINIL
     Dosage: 0.181 ?G/KG, CONTINUING
     Route: 041
     Dates: start: 2018
  10. ADCIRCA [Suspect]
     Active Substance: TADALAFIL
     Indication: Pulmonary arterial hypertension
     Dosage: 40 MG, QD
     Route: 048
     Dates: start: 201108
  11. ADCIRCA [Suspect]
     Active Substance: TADALAFIL
     Dosage: UNK
     Route: 048
     Dates: start: 20110805
  12. AMBRISENTAN [Suspect]
     Active Substance: AMBRISENTAN
     Indication: Pulmonary arterial hypertension
     Dosage: 10 MG, QD
     Route: 048
     Dates: start: 201110, end: 2018
  13. AMBRISENTAN [Suspect]
     Active Substance: AMBRISENTAN
     Dosage: UNK
     Route: 048
     Dates: start: 20111006
  14. OXYGEN [Suspect]
     Active Substance: OXYGEN
     Indication: Pulmonary arterial hypertension
     Dosage: 4 L/MIN
     Route: 065
     Dates: start: 20170414
  15. EPOPROSTENOL SODIUM [Concomitant]
     Active Substance: EPOPROSTENOL SODIUM
     Indication: Pulmonary arterial hypertension
     Dosage: 0.09 ?G/KG, CONTINUING
     Route: 041
     Dates: end: 20170501
  16. EPOPROSTENOL SODIUM [Concomitant]
     Active Substance: EPOPROSTENOL SODIUM
     Dosage: UNK (DOSE REDUCED), CONTINUING
     Route: 041
  17. SILDENAFIL CITRATE [Concomitant]
     Active Substance: SILDENAFIL CITRATE
     Indication: Pulmonary arterial hypertension
     Dosage: 15 MG, QD
     Route: 048
  18. SILDENAFIL CITRATE [Concomitant]
     Active Substance: SILDENAFIL CITRATE
     Dosage: 30 MG, QD
     Route: 048
  19. SILDENAFIL CITRATE [Concomitant]
     Active Substance: SILDENAFIL CITRATE
     Dosage: 45 MG, QD
     Route: 048
  20. TORSEMIDE [Concomitant]
     Active Substance: TORSEMIDE
     Indication: Pulmonary arterial hypertension
     Dosage: UNK
     Route: 048
  21. FUROSEMIDE [Concomitant]
     Active Substance: FUROSEMIDE
     Indication: Pulmonary arterial hypertension
     Dosage: UNK
     Route: 048
  22. SPIRONOLACTONE [Concomitant]
     Active Substance: SPIRONOLACTONE
     Indication: Pulmonary arterial hypertension
     Dosage: UNK
     Route: 048
  23. AMIODARONE HYDROCHLORIDE [Concomitant]
     Active Substance: AMIODARONE HYDROCHLORIDE
     Indication: Pulmonary arterial hypertension
     Dosage: UNK
     Route: 048
     Dates: start: 20170214, end: 20170220
  24. Vasolan [Concomitant]
     Indication: Pulmonary arterial hypertension
     Dosage: UNK
     Route: 048
     Dates: start: 20170228
  25. BERAPROST SODIUM [Concomitant]
     Active Substance: BERAPROST SODIUM
     Indication: Pulmonary arterial hypertension
     Dosage: 360 ?L, QD
     Route: 048
     Dates: start: 201208
  26. MACITENTAN [Concomitant]
     Active Substance: MACITENTAN
     Indication: Product used for unknown indication
     Dosage: 10 MG, QD
     Route: 065
     Dates: start: 2018
  27. PREDNISOLONE [Concomitant]
     Active Substance: PREDNISOLONE
     Indication: Product used for unknown indication
     Dosage: UNK
     Route: 065

REACTIONS (8)
  - Vascular device infection [Recovering/Resolving]
  - Pulmonary hypertension [Unknown]
  - Palpitations [Recovering/Resolving]
  - Platelet count decreased [Recovered/Resolved]
  - Hypotension [Unknown]
  - Weight increased [Unknown]
  - Dyspnoea [Unknown]
  - Therapeutic response decreased [Unknown]

NARRATIVE: CASE EVENT DATE: 20170101
